FAERS Safety Report 10531416 (Version 8)
Quarter: 2015Q3

REPORT INFORMATION
  Report Type: Report from Study
  Country: CA (occurrence: CA)
  Receive Date: 20141021
  Receipt Date: 20150810
  Transmission Date: 20151125
  Serious: Yes (Other)
  Sender: FDA-Public Use
  Company Number: PHHY2014CA135442

PATIENT
  Age: 74 Year
  Sex: Female

DRUGS (2)
  1. SANDOSTATIN LAR DEPOT [Suspect]
     Active Substance: OCTREOTIDE ACETATE
     Indication: CARCINOID TUMOUR
     Dosage: 30 MG, QMO (EVERY 4 WEEKS)
     Route: 030
     Dates: start: 200702
  2. ACCUPRIL [Concomitant]
     Active Substance: QUINAPRIL HYDROCHLORIDE
     Indication: PRODUCT USED FOR UNKNOWN INDICATION
     Dosage: 40 MG, QD
     Route: 065

REACTIONS (18)
  - Cardiac failure [Unknown]
  - Mineral deficiency [Unknown]
  - Blood pressure systolic increased [Unknown]
  - Injection site pain [Unknown]
  - Cardiac valve disease [Unknown]
  - Fatigue [Unknown]
  - Diarrhoea [Unknown]
  - Injection site mass [Unknown]
  - Malignant neoplasm progression [Unknown]
  - Blood pressure abnormal [Unknown]
  - Asthenia [Unknown]
  - Cardiac disorder [Unknown]
  - Terminal state [Not Recovered/Not Resolved]
  - Metastases to liver [Unknown]
  - Hypertension [Unknown]
  - Body temperature decreased [Unknown]
  - Injection site injury [Unknown]
  - General physical health deterioration [Unknown]

NARRATIVE: CASE EVENT DATE: 2014
